FAERS Safety Report 7045605-7 (Version None)
Quarter: 2010Q4

REPORT INFORMATION
  Report Type: 
  Country: None (occurrence: None)
  Receive Date: 20101014
  Receipt Date: 20100915
  Transmission Date: 20110411
  Serious: Yes (Death)
  Sender: FDA-Public Use
  Company Number: US-ROCHE-732009

PATIENT
  Sex: Male

DRUGS (1)
  1. AVASTIN [Suspect]
     Indication: ANAPLASTIC ASTROCYTOMA
     Dosage: DOSE AND FREQUENCY WAS NOT PROVIDED
     Route: 042
     Dates: start: 20091026, end: 20100317

REACTIONS (1)
  - ANAPLASTIC ASTROCYTOMA [None]
